FAERS Safety Report 10250302 (Version 1)
Quarter: 2014Q2

REPORT INFORMATION
  Report Type: Spontaneous
  Country: CN (occurrence: CN)
  Receive Date: 20140620
  Receipt Date: 20140620
  Transmission Date: 20141212
  Serious: Yes (Other)
  Sender: FDA-Public Use
  Company Number: CN-ELI_LILLY_AND_COMPANY-CN201406005331

PATIENT
  Sex: Female
  Weight: 60 kg

DRUGS (7)
  1. ZYPREXA [Suspect]
     Indication: DEPRESSION
     Dosage: 5 MG, QD
     Route: 048
     Dates: start: 20131106, end: 20131128
  2. ZYPREXA [Suspect]
     Indication: CONVULSION
  3. CLOZAPINE [Suspect]
     Indication: SLEEP DISORDER
     Dosage: 125 MG, QD
     Route: 048
  4. REMERON [Suspect]
     Indication: DEPRESSION
     Dosage: 30 MG, QD
     Route: 048
     Dates: start: 20131111, end: 20131216
  5. REMERON [Suspect]
     Indication: CONVULSION
  6. EFFEXOR XR [Suspect]
     Indication: DEPRESSION
     Dosage: 75 MG, QD
     Route: 048
     Dates: start: 20131023, end: 20131213
  7. EFFEXOR XR [Suspect]
     Indication: CONVULSION

REACTIONS (2)
  - Leukocytosis [Recovered/Resolved]
  - Off label use [Unknown]
